FAERS Safety Report 5378208-0 (Version None)
Quarter: 2007Q3

REPORT INFORMATION
  Report Type: 
  Country: None (occurrence: None)
  Receive Date: 20070705
  Receipt Date: 20070628
  Transmission Date: 20080115
  Serious: Yes (Hospitalization)
  Sender: FDA-Public Use
  Company Number: US-JNJFOC-20061005396

PATIENT
  Sex: Female
  Weight: 109.6 kg

DRUGS (8)
  1. ORTHO EVRA [Suspect]
     Indication: CONTRACEPTION
     Route: 062
  2. EFFEXOR [Concomitant]
     Route: 048
  3. EFFEXOR [Concomitant]
     Indication: DEPRESSION
     Route: 048
  4. TRAZODONE HCL [Concomitant]
     Route: 048
  5. TRAZODONE HCL [Concomitant]
     Indication: DEPRESSION
     Route: 048
  6. FOLIC ACID [Concomitant]
     Route: 048
  7. FISH OIL [Concomitant]
     Route: 048
  8. PERCOCET [Concomitant]
     Indication: PAIN
     Route: 065

REACTIONS (2)
  - DEPRESSION SUICIDAL [None]
  - PULMONARY EMBOLISM [None]
